FAERS Safety Report 5507630-4 (Version None)
Quarter: 2007Q4

REPORT INFORMATION
  Report Type: 
  Country: None (occurrence: None)
  Receive Date: 20071102
  Receipt Date: 20071003
  Transmission Date: 20080405
  Serious: No
  Sender: FDA-Public Use
  Company Number: 2007EU002182

PATIENT
  Age: 12 Year
  Sex: Male

DRUGS (1)
  1. PROTOPIC [Suspect]
     Indication: DERMATITIS ATOPIC
     Dosage: 0.03%, BID, TOPICAL, 0.03%, UID/QD, TOPICAL, 0.03%, 3XWEEKLY, TOPICAL
     Route: 061

REACTIONS (3)
  - CONDITION AGGRAVATED [None]
  - DERMATITIS ATOPIC [None]
  - SKIN PAPILLOMA [None]
